FAERS Safety Report 6763463-2 (Version None)
Quarter: 2010Q2

REPORT INFORMATION
  Report Type: 
  Country: None (occurrence: None)
  Receive Date: 20100608
  Receipt Date: 20100604
  Transmission Date: 20101027
  Serious: Yes (Hospitalization, Other)
  Sender: FDA-Public Use
  Company Number: SP02923

PATIENT
  Age: 67 Year
  Sex: Female

DRUGS (12)
  1. VISICOL [Suspect]
     Indication: BOWEL PREPARATION
     Dosage: (50 GM),ORAL
     Route: 048
     Dates: start: 20100426, end: 20100426
  2. VALSARTAN  AND HYDROCHLOROTHIAZIDE [Concomitant]
  3. CILNIDIPINE [Concomitant]
  4. LEVOTHYROXINE SODIUM [Concomitant]
  5. MELOXICAM [Concomitant]
  6. ALFACALCIDOL [Concomitant]
  7. FAMOTIDINE [Concomitant]
  8. OMEPRAZOLE [Concomitant]
  9. ZOLPIDEM [Concomitant]
  10. FLURIBPROFEN AXETIL [Concomitant]
  11. GLYCYRRHIZIN/GLYCINE/CYSTEINE [Concomitant]
  12. MIRIPLATIN HYDRATE [Concomitant]

REACTIONS (8)
  - AZOTAEMIA [None]
  - BLOOD PRESSURE INCREASED [None]
  - DYSPNOEA [None]
  - HAEMODIALYSIS [None]
  - HYPOCALCAEMIA [None]
  - NAUSEA [None]
  - RENAL FAILURE ACUTE [None]
  - VOMITING [None]
